FAERS Safety Report 8333592-0 (Version None)
Quarter: 2012Q2

REPORT INFORMATION
  Report Type: 
  Country: None (occurrence: None)
  Receive Date: 20120503
  Receipt Date: 20110107
  Transmission Date: 20120825
  Serious: No
  Sender: FDA-Public Use
  Company Number: US-TEVA-2010006116

PATIENT
  Sex: Female
  Weight: 74.91 kg

DRUGS (11)
  1. METOFORMIN [Concomitant]
     Dates: start: 20090501
  2. REMICADE [Concomitant]
     Dates: start: 20080501
  3. SAIZEN [Concomitant]
     Dates: start: 20050101
  4. NUVIGIL [Suspect]
     Indication: SLEEP APNOEA SYNDROME
     Dosage: 125 MILLIGRAM;
     Route: 048
     Dates: start: 20100501
  5. METOFORMIN [Concomitant]
     Dates: start: 20090101
  6. IMURAN [Concomitant]
  7. ESTRADIOL [Concomitant]
     Dates: start: 20000101
  8. FENTANYL [Concomitant]
     Route: 062
     Dates: start: 20100501
  9. OMEPRAZOLE [Concomitant]
     Dates: start: 20090101
  10. NUVIGIL [Suspect]
     Indication: BEHCET'S SYNDROME
  11. SYNTHROID [Concomitant]
     Dates: start: 19950101

REACTIONS (6)
  - ANXIETY [None]
  - LIVER FUNCTION TEST ABNORMAL [None]
  - MENTAL DISORDER [None]
  - HAEMATOLOGY TEST ABNORMAL [None]
  - HYPERSENSITIVITY [None]
  - FORMICATION [None]
